FAERS Safety Report 14249601 (Version 1)
Quarter: 2017Q4

REPORT INFORMATION
  Report Type: Spontaneous
  Country: US (occurrence: None)
  Receive Date: 20171204
  Receipt Date: 20171204
  Transmission Date: 20180321
  Serious: Yes (Other)
  Sender: FDA-Public Use
  Company Number: None

PATIENT
  Age: 71 Year
  Sex: Male
  Weight: 88.22 kg

DRUGS (1)
  1. IRON DEXTRAN [Suspect]
     Active Substance: IRON DEXTRAN
     Indication: ANAEMIA
     Route: 042
     Dates: start: 20171024, end: 20171024

REACTIONS (5)
  - Sedation [None]
  - Respiratory depression [None]
  - Seizure [None]
  - Unresponsive to stimuli [None]
  - Dyspnoea [None]

NARRATIVE: CASE EVENT DATE: 20171024
